FAERS Safety Report 25718094 (Version 1)
Quarter: 2025Q3

REPORT INFORMATION
  Report Type: Spontaneous
  Country: US (occurrence: US)
  Receive Date: 20250823
  Receipt Date: 20250823
  Transmission Date: 20251021
  Serious: No
  Sender: ALEXION PHARMACEUTICALS
  Company Number: US-AstraZeneca-CH-00934446A

PATIENT
  Sex: Female

DRUGS (1)
  1. LYNPARZA [Suspect]
     Active Substance: OLAPARIB
     Indication: Ovarian cancer
     Route: 065

REACTIONS (7)
  - Fatigue [Unknown]
  - Feeling of relaxation [Unknown]
  - Drug ineffective [Unknown]
  - Cardiac disorder [Unknown]
  - Oedema peripheral [Unknown]
  - Insomnia [Unknown]
  - Weight increased [Unknown]
